FAERS Safety Report 15631303 (Version 3)
Quarter: 2019Q1

REPORT INFORMATION
  Report Type: Spontaneous
  Country: FR (occurrence: FR)
  Receive Date: 20181119
  Receipt Date: 20190307
  Transmission Date: 20190417
  Serious: Yes (Death, Hospitalization, Other)
  Sender: FDA-Public Use
  Company Number: FR-AUROBINDO-AUR-APL-2018-055535

PATIENT

DRUGS (5)
  1. ATENOLOL. [Suspect]
     Active Substance: ATENOLOL
     Indication: TACHYCARDIA
     Dosage: UNK
     Route: 065
  2. NOLVADEX [Interacting]
     Active Substance: TAMOXIFEN CITRATE
     Dosage: 40 MILLIGRAM, ONCE A DAY
     Route: 048
  3. BISOPROLOL [Concomitant]
     Active Substance: BISOPROLOL
     Indication: PRODUCT USED FOR UNKNOWN INDICATION
     Dosage: UNK
     Route: 065
  4. NOLVADEX [Interacting]
     Active Substance: TAMOXIFEN CITRATE
     Indication: METASTASES TO PERITONEUM
     Dosage: 80 MILLIGRAM, ONCE A DAY
     Route: 048
     Dates: start: 20181004
  5. CORDARONE [Interacting]
     Active Substance: AMIODARONE HYDROCHLORIDE
     Indication: TACHYCARDIA
     Dosage: UNK
     Route: 042
     Dates: start: 201810, end: 201810

REACTIONS (17)
  - Off label use [Unknown]
  - Drug ineffective [Recovered/Resolved]
  - Disease progression [Fatal]
  - Lung disorder [Recovered/Resolved]
  - Protein albumin ratio decreased [Not Recovered/Not Resolved]
  - Malnutrition [Unknown]
  - Tumour marker increased [Not Recovered/Not Resolved]
  - Death [Fatal]
  - Pneumonia bacterial [Unknown]
  - Pyloric stenosis [Not Recovered/Not Resolved]
  - Pyloric stenosis [Unknown]
  - Product use in unapproved indication [Unknown]
  - Drug interaction [Recovered/Resolved]
  - Tachycardia [Unknown]
  - Oedema peripheral [Unknown]
  - Starvation [Not Recovered/Not Resolved]
  - General physical health deterioration [Unknown]

NARRATIVE: CASE EVENT DATE: 201807
